FAERS Safety Report 6274997-1 (Version None)
Quarter: 2009Q3

REPORT INFORMATION
  Report Type: 
  Country: None (occurrence: None)
  Receive Date: 20090717
  Receipt Date: 20090702
  Transmission Date: 20100115
  Serious: Yes (Hospitalization)
  Sender: FDA-Public Use
  Company Number: 8048025

PATIENT
  Sex: Female

DRUGS (2)
  1. KEPPRA [Suspect]
  2. VIMPAT [Suspect]
     Dosage: 150 MG 2/D

REACTIONS (1)
  - EPILEPSY [None]
